FAERS Safety Report 10237813 (Version 2)
Quarter: 2014Q2

REPORT INFORMATION
  Report Type: Report from Study
  Country: CA (occurrence: CA)
  Receive Date: 20140616
  Receipt Date: 20140616
  Transmission Date: 20141212
  Serious: Yes (Hospitalization)
  Sender: FDA-Public Use
  Company Number: CA-CELGENEUS-028-21880-14053683

PATIENT
  Age: 75 Year
  Sex: Male
  Weight: 99.5 kg

DRUGS (32)
  1. REVLIMID [Suspect]
     Indication: PLASMA CELL MYELOMA
     Dosage: 25 MILLIGRAM
     Route: 048
     Dates: start: 20110616
  2. REVLIMID [Suspect]
     Dosage: 15 MILLIGRAM
     Route: 048
     Dates: start: 20140306
  3. DEXAMETHASONE [Suspect]
     Indication: PLASMA CELL MYELOMA
     Route: 065
     Dates: start: 20110616
  4. DEXAMETHASONE [Suspect]
     Route: 065
     Dates: start: 20121210
  5. DEXAMETHASONE [Suspect]
     Route: 065
     Dates: start: 20140403
  6. CARFILZOMIB [Suspect]
     Indication: PLASMA CELL MYELOMA
     Route: 065
     Dates: start: 20110714
  7. NORMAL SALINE [Concomitant]
     Indication: FEMORAL NECK FRACTURE
     Dosage: 100 MILLILITER
     Route: 041
     Dates: start: 20140418
  8. ACETAMINOPHEN [Concomitant]
     Indication: PAIN
     Route: 048
     Dates: start: 20140419
  9. ATROVENT [Concomitant]
     Indication: DYSPNOEA
     Route: 055
     Dates: start: 20140214
  10. CHLOROBUTANOL [Concomitant]
     Indication: CERUMEN IMPACTION
     Dosage: 15 DROPS
     Route: 061
     Dates: start: 20140108
  11. COLACE [Concomitant]
     Indication: CONSTIPATION
     Dosage: 100 MILLIGRAM
     Route: 048
     Dates: start: 20091127
  12. EPREX [Concomitant]
     Indication: ANAEMIA
     Dosage: 40000 UNIT
     Route: 058
     Dates: start: 20111226
  13. FENTANYL [Concomitant]
     Indication: COLONOSCOPY
     Dosage: 50 MILLIGRAM
     Route: 041
     Dates: start: 20140510, end: 20140510
  14. FENTANYL [Concomitant]
     Dosage: 50 MILLIGRAM
     Route: 041
     Dates: start: 20140512, end: 20140512
  15. HYDROMORPHONE [Concomitant]
     Indication: FEMORAL NECK FRACTURE
     Route: 058
     Dates: start: 20140418
  16. IMODIUM [Concomitant]
     Indication: DIARRHOEA
     Route: 048
     Dates: start: 20131211
  17. LASIX [Concomitant]
     Indication: OEDEMA
     Route: 048
     Dates: start: 20121107
  18. LIPITOR [Concomitant]
     Indication: HYPERCHOLESTEROLAEMIA
     Dosage: 80 MILLIGRAM
     Route: 048
     Dates: start: 20090917
  19. LOPRESSOR [Concomitant]
     Indication: HYPERTENSION
     Dosage: 12.5 MILLIGRAM
     Route: 048
     Dates: start: 20101102
  20. LOSEC [Concomitant]
     Indication: GASTROOESOPHAGEAL REFLUX DISEASE
     Dosage: 20 MILLIGRAM
     Route: 048
     Dates: start: 20090917
  21. NEUPOGEN [Concomitant]
     Indication: NEUTROPENIA
     Route: 058
     Dates: start: 20120213
  22. PICO SALAX [Concomitant]
     Indication: COLONOSCOPY
     Dosage: 1 PACKET
     Route: 048
     Dates: start: 20140511, end: 20140512
  23. PLAVIX [Concomitant]
     Indication: CORONARY ARTERY DISEASE
     Dosage: 75 MILLIGRAM
     Route: 048
     Dates: start: 20120607
  24. SENOKOT [Concomitant]
     Indication: CONSTIPATION
     Dosage: 1-2 TABLETS
     Route: 048
     Dates: start: 20091117
  25. SULFATRIM DS [Concomitant]
     Indication: ANTI-INFECTIVE THERAPY
     Dosage: 1 TABLET
     Route: 048
     Dates: start: 200910
  26. TINZAPARIN [Concomitant]
     Indication: ATRIAL FIBRILLATION
     Dosage: 14000 UNITS
     Route: 058
     Dates: start: 20140205
  27. TINZAPARIN [Concomitant]
     Dosage: 14000 UNITS
     Route: 058
     Dates: start: 20140215
  28. VERSED [Concomitant]
     Indication: COLONOSCOPY
     Dosage: 3 MILLIGRAM
     Route: 041
     Dates: start: 20140510, end: 20140510
  29. VERSED [Concomitant]
     Dosage: 3 MILLIGRAM
     Route: 041
     Dates: start: 20140512, end: 20140512
  30. VITAMIN D [Concomitant]
     Indication: ROUTINE HEALTH MAINTENANCE
     Dosage: 1000 MILLIGRAM
     Route: 048
     Dates: start: 201309
  31. VITAMIN K [Concomitant]
     Indication: INTERNATIONAL NORMALISED RATIO INCREASED
     Dosage: 10 MILLIGRAM
     Route: 041
     Dates: start: 20140515, end: 20140515
  32. REPLAVITE [Concomitant]
     Indication: SUPPLEMENTATION THERAPY
     Route: 048
     Dates: start: 20090917

REACTIONS (1)
  - Rectal adenocarcinoma [Not Recovered/Not Resolved]
